FAERS Safety Report 7925408-9 (Version None)
Quarter: 2011Q4

REPORT INFORMATION
  Report Type: 
  Country: None (occurrence: None)
  Receive Date: 20111118
  Receipt Date: 20110406
  Transmission Date: 20120403
  Serious: No
  Sender: FDA-Public Use
  Company Number: US-AMGEN-USASP2011018219

PATIENT
  Age: 47 Year
  Sex: Female
  Weight: 102.4 kg

DRUGS (15)
  1. NITROFURANT MACRO [Concomitant]
     Dosage: 50 MG, UNK
  2. PLAQUENIL [Concomitant]
     Dosage: 200 MG, UNK
  3. METHOTREXATE [Concomitant]
     Dosage: 2.5 MG, UNK
  4. BUTALBITAL/APAP [Concomitant]
  5. TRAMADOL HCL [Concomitant]
     Dosage: 50 MG, UNK
  6. FOLIC ACID [Concomitant]
     Dosage: 1 MG, UNK
  7. NEXIUM [Concomitant]
     Dosage: 20 MG, UNK
  8. ENBREL [Suspect]
     Indication: PRODUCT USED FOR UNKNOWN INDICATION
     Dosage: 50 MG, QWK
     Route: 058
  9. MILK OF MAGNESIA TAB [Concomitant]
  10. TRAZODONE HCL [Concomitant]
     Dosage: 50 MG, UNK
  11. ETODOLAC [Concomitant]
     Dosage: 200 MG, UNK
  12. PROMETHAZINE [Concomitant]
     Dosage: 25 MG, UNK
  13. PREDNISONE TAB [Concomitant]
     Dosage: 1 MG, UNK
  14. OMEPRAZOLE [Concomitant]
     Dosage: 20 MG, UNK
  15. HYDROCODONE BITARTRATE AND ACETAMINOPHEN [Concomitant]
     Dosage: 500 MG, UNK

REACTIONS (1)
  - MIGRAINE [None]
